FAERS Safety Report 15397975 (Version 1)
Quarter: 2018Q3

REPORT INFORMATION
  Report Type: Spontaneous
  Country: US (occurrence: US)
  Receive Date: 20180918
  Receipt Date: 20180918
  Transmission Date: 20181010
  Serious: No
  Sender: FDA-Public Use
  Company Number: US-TAKEDA-2018TUS027103

PATIENT
  Sex: Female
  Weight: 54.42 kg

DRUGS (3)
  1. WELLBUTRIN [Concomitant]
     Active Substance: BUPROPION HYDROCHLORIDE
     Indication: DEPRESSION
     Dosage: UNK UNK, QD
     Route: 048
     Dates: start: 2016
  2. PRENATAL                           /02134801/ [Concomitant]
     Indication: PREGNANCY
     Dosage: UNK UNK, QD
     Route: 048
  3. DEXILANT [Suspect]
     Active Substance: DEXLANSOPRAZOLE
     Indication: GASTROOESOPHAGEAL REFLUX DISEASE
     Dosage: 60 MG, QD
     Route: 048
     Dates: start: 2016, end: 201809

REACTIONS (3)
  - Incorrect drug administration duration [Unknown]
  - Exposure during pregnancy [Unknown]
  - No adverse event [Unknown]
